FAERS Safety Report 11186906 (Version 1)
Quarter: 2015Q2

REPORT INFORMATION
  Report Type: Spontaneous
  Country: US (occurrence: US)
  Receive Date: 20150614
  Receipt Date: 20150614
  Transmission Date: 20150821
  Serious: No
  Sender: FDA-Public Use
  Company Number: US-009507513-1506USA004249

PATIENT
  Age: 87 Year
  Sex: Female

DRUGS (4)
  1. DONEPEZIL [Concomitant]
     Active Substance: DONEPEZIL
  2. SUCRALFATE. [Concomitant]
     Active Substance: SUCRALFATE
  3. VESICARE [Concomitant]
     Active Substance: SOLIFENACIN SUCCINATE
  4. BELSOMRA [Suspect]
     Active Substance: SUVOREXANT
     Indication: INSOMNIA
     Dosage: 10 MG, QD AT NIGHT
     Route: 048
     Dates: start: 20150603, end: 20150605

REACTIONS (1)
  - Drug ineffective [Recovered/Resolved]

NARRATIVE: CASE EVENT DATE: 20150604
